FAERS Safety Report 12437787 (Version 1)
Quarter: 2016Q2

REPORT INFORMATION
  Report Type: Spontaneous
  Country: US (occurrence: None)
  Receive Date: 20160603
  Receipt Date: 20160603
  Transmission Date: 20160815
  Serious: Yes (Hospitalization)
  Sender: FDA-Public Use
  Company Number: None

PATIENT
  Age: 22 Year
  Sex: Female

DRUGS (2)
  1. BACTRIM [Suspect]
     Active Substance: SULFAMETHOXAZOLE\TRIMETHOPRIM
     Indication: PLEURITIC PAIN
     Dates: start: 20160515, end: 20160524
  2. METHYLPRENISOLONE DOSEPAK [Concomitant]

REACTIONS (8)
  - Rash [None]
  - Tachycardia [None]
  - Vomiting [None]
  - Nausea [None]
  - Hypoaesthesia oral [None]
  - Pharyngeal oedema [None]
  - Rash generalised [None]
  - Hypersensitivity [None]

NARRATIVE: CASE EVENT DATE: 20160523
